FAERS Safety Report 8314137-8 (Version None)
Quarter: 2012Q2

REPORT INFORMATION
  Report Type: 
  Country: None (occurrence: None)
  Receive Date: 20120426
  Receipt Date: 20120417
  Transmission Date: 20120825
  Serious: Yes (Other)
  Sender: FDA-Public Use
  Company Number: JP-VERTEX PHARMACEUTICALS INC.-AE-2012-005403

PATIENT
  Age: 65 Year
  Sex: Female

DRUGS (16)
  1. RIBAVIRIN [Concomitant]
     Route: 048
     Dates: start: 20120201, end: 20120307
  2. RIBAVIRIN [Concomitant]
     Route: 048
     Dates: start: 20120411
  3. RIBAVIRIN [Concomitant]
     Indication: HEPATITIS C
     Route: 048
     Dates: start: 20120118, end: 20120130
  4. PEGINTERFERON [Concomitant]
     Route: 051
     Dates: start: 20120321
  5. PEGINTERFERON [Concomitant]
     Route: 051
     Dates: start: 20120215
  6. PEGINTERFERON [Concomitant]
     Route: 051
     Dates: end: 20120307
  7. PEGINTERFERON [Concomitant]
     Route: 051
     Dates: start: 20120314, end: 20120320
  8. EPINASTINE HYDROCHLORIDE [Concomitant]
     Route: 048
     Dates: start: 20120118, end: 20120313
  9. TELAVIC (TELAPREVIR) [Suspect]
     Route: 048
     Dates: start: 20120128, end: 20120130
  10. TELAVIC (TELAPREVIR) [Suspect]
     Route: 048
     Dates: start: 20120131, end: 20120307
  11. TELAVIC (TELAPREVIR) [Suspect]
     Indication: HEPATITIS C
     Route: 048
     Dates: start: 20120118, end: 20120127
  12. PEGINTERFERON [Concomitant]
     Route: 051
     Dates: start: 20120201
  13. URSO 250 [Concomitant]
     Route: 048
     Dates: end: 20120313
  14. RIBAVIRIN [Concomitant]
     Route: 048
     Dates: start: 20120404, end: 20120410
  15. PEGINTERFERON [Concomitant]
     Indication: HEPATITIS C
     Route: 051
     Dates: start: 20120118, end: 20120131
  16. RIBAVIRIN [Concomitant]
     Route: 048
     Dates: start: 20120131, end: 20120131

REACTIONS (1)
  - HEPATIC FUNCTION ABNORMAL [None]
